FAERS Safety Report 6766709-X (Version None)
Quarter: 2010Q2

REPORT INFORMATION
  Report Type: 
  Country: None (occurrence: None)
  Receive Date: 20100611
  Receipt Date: 20100603
  Transmission Date: 20101027
  Serious: Yes (Other)
  Sender: FDA-Public Use
  Company Number: UG-ABBOTT-10P-165-0648959-00

PATIENT
  Age: 24 Year
  Sex: Female

DRUGS (4)
  1. ALUVIA TABLETS [Suspect]
     Indication: MALARIA PROPHYLAXIS
     Route: 048
  2. ALUVIA TABLETS [Suspect]
     Indication: HIV INFECTION
  3. AZT [Concomitant]
     Indication: HIV INFECTION
  4. LAMIVUDINE (EPIVIR HBV) [Concomitant]
     Indication: HIV INFECTION

REACTIONS (1)
  - INTRA-UTERINE DEATH [None]
